FAERS Safety Report 22794189 (Version 2)
Quarter: 2024Q4

REPORT INFORMATION
  Report Type: Spontaneous
  Country: DE (occurrence: DE)
  Receive Date: 20230807
  Receipt Date: 20241106
  Transmission Date: 20250115
  Serious: Yes (Life-Threatening, Hospitalization, Disabling, Other)
  Sender: ORGANON
  Company Number: DE-002147023-NVSC2021DE287500

PATIENT
  Sex: Male
  Weight: 89 kg

DRUGS (9)
  1. LOSARTAN POTASSIUM [Suspect]
     Active Substance: LOSARTAN POTASSIUM
     Indication: Hypertension
     Dosage: 50 MG, QD, (ONCE DAILY IN THE MORNING (1-0-0))
     Route: 065
     Dates: start: 2020, end: 20211002
  2. LOSARTAN POTASSIUM [Suspect]
     Active Substance: LOSARTAN POTASSIUM
     Dosage: 50 MG, BID, (ONCE IN THE MORNING, ONCE IN THE EVENING (1-0-1))
     Route: 065
  3. LOSARTAN POTASSIUM [Suspect]
     Active Substance: LOSARTAN POTASSIUM
     Dosage: 50 MG, QD, (ONCE DAILY IN THE MORNING (1-0-0))
     Route: 048
     Dates: start: 20151126
  4. LOSARTAN POTASSIUM [Suspect]
     Active Substance: LOSARTAN POTASSIUM
     Dosage: 15 MG, QD, (MORNING)
     Route: 065
  5. PANTOZOL [Concomitant]
     Active Substance: PANTOPRAZOLE SODIUM
     Indication: Product used for unknown indication
     Dosage: UNK UNK, QD
     Route: 065
  6. PROPOFOL [Concomitant]
     Active Substance: PROPOFOL
     Indication: Colonoscopy
     Dosage: 240 MG
     Route: 042
     Dates: start: 20181123, end: 20181123
  7. AMLODIPINE [Concomitant]
     Active Substance: AMLODIPINE BESYLATE
     Indication: Hypertension
     Dosage: 1 DOSAGE FORM, QD, (AFTERNOON, 0-1-0-0)
     Route: 048
     Dates: start: 20151126
  8. MOVICOL [Concomitant]
     Active Substance: POLYETHYLENE GLYCOL 3350\POTASSIUM CHLORIDE\SODIUM BICARBONATE\SODIUM CHLORIDE
     Indication: Product used for unknown indication
     Dosage: UNK UNK, QD
     Route: 065
  9. IBUPROFEN [Concomitant]
     Active Substance: IBUPROFEN
     Indication: Product used for unknown indication
     Dosage: 600 MG, PRN (AS NEEDED)
     Route: 065

REACTIONS (27)
  - Rectal adenocarcinoma [Not Recovered/Not Resolved]
  - Intestinal mass [Unknown]
  - Osteochondrosis [Unknown]
  - Renal impairment [Unknown]
  - Anastomotic leak [Recovering/Resolving]
  - Abdominal pain [Recovering/Resolving]
  - Adenocarcinoma [Recovered/Resolved]
  - Neoplasm malignant [Unknown]
  - Carotid artery disease [Unknown]
  - Back pain [Recovering/Resolving]
  - Depression [Unknown]
  - Polyp [Recovering/Resolving]
  - Chronic gastritis [Unknown]
  - Renal cyst [Unknown]
  - Hepatic cyst [Unknown]
  - Cyst [Unknown]
  - Anal haemorrhage [Unknown]
  - Muscular weakness [Not Recovered/Not Resolved]
  - Haemorrhoids [Unknown]
  - Serum ferritin increased [Unknown]
  - Diverticulum intestinal [Unknown]
  - Thyroid mass [Unknown]
  - General physical health deterioration [Unknown]
  - Fatigue [Unknown]
  - Hepatic lesion [Unknown]
  - Hypercholesterolaemia [Unknown]
  - Spinal osteoarthritis [Unknown]

NARRATIVE: CASE EVENT DATE: 20151101
